FAERS Safety Report 16804249 (Version 1)
Quarter: 2019Q3

REPORT INFORMATION
  Report Type: Spontaneous
  Country: IN (occurrence: IN)
  Receive Date: 20190913
  Receipt Date: 20190913
  Transmission Date: 20191005
  Serious: Yes (Other)
  Sender: FDA-Public Use
  Company Number: IN-ACCORD-154721

PATIENT
  Age: 55 Year
  Sex: Female

DRUGS (2)
  1. FLUOROURACIL. [Suspect]
     Active Substance: FLUOROURACIL
     Indication: KELOID SCAR
     Dosage: STRENGTH : 50 MG/ML
     Route: 026
  2. TRIAMCINOLONE [Suspect]
     Active Substance: TRIAMCINOLONE
     Indication: KELOID SCAR
     Dosage: STRENGTH : 40 MG/ML
     Route: 026

REACTIONS (1)
  - Dermatophytosis [Recovering/Resolving]
